FAERS Safety Report 9025366 (Version 1)
Quarter: 2012Q4

REPORT INFORMATION
  Report Type: 
  Country: NL (occurrence: NL)
  Receive Date: 20121211
  Receipt Date: 20121211
  Transmission Date: 20130627
  Serious: Yes (Other)
  Sender: FDA-Public Use
  Company Number: PHHY2012NL113051

PATIENT
  Sex: Male

DRUGS (4)
  1. ZOMETA [Suspect]
     Indication: PROSTATE CANCER METASTATIC
     Dosage: 4 mg / 100ml once in 28 days
     Route: 042
  2. ZOMETA [Suspect]
     Dosage: 4 mg / 100ml once in 28 days
     Route: 042
     Dates: start: 20120706
  3. ZOMETA [Suspect]
     Dosage: 4 mg / 100ml once in 28 days
     Route: 042
     Dates: start: 20121031
  4. ZOMETA [Suspect]
     Dosage: 4 mg / 100ml once in 28 days
     Route: 042
     Dates: start: 20121127

REACTIONS (1)
  - Terminal state [Unknown]
